FAERS Safety Report 6123273-6 (Version None)
Quarter: 2009Q1

REPORT INFORMATION
  Report Type: 
  Country: None (occurrence: None)
  Receive Date: 20090318
  Receipt Date: 20090310
  Transmission Date: 20090719
  Serious: Yes (Other)
  Sender: FDA-Public Use
  Company Number: US-AVENTIS-200911940US

PATIENT
  Age: 84 Year
  Sex: Male

DRUGS (3)
  1. LANTUS [Suspect]
     Route: 058
     Dates: start: 20090101
  2. OPTICLIK (INSULIN INJECTION PEN) [Suspect]
     Dates: start: 20090101
  3. UNKNOWN DRUG [Concomitant]
     Dosage: DOSE: UNK

REACTIONS (4)
  - DEVICE FAILURE [None]
  - FALL [None]
  - HEAD INJURY [None]
  - VISUAL IMPAIRMENT [None]
